FAERS Safety Report 9397951 (Version 1)
Quarter: 2013Q3

REPORT INFORMATION
  Report Type: Spontaneous
  Country: IL (occurrence: None)
  Receive Date: 20130709
  Receipt Date: 20130709
  Transmission Date: 20140515
  Serious: Yes (Hospitalization)
  Sender: FDA-Public Use
  Company Number: FK201302318

PATIENT
  Age: 8 Month
  Sex: Male

DRUGS (3)
  1. OCTREOTIDE [Suspect]
     Indication: HYPERINSULINAEMIA
     Dosage: 5 UG/KG, VIA SUB-CUTANEOUS PUMP, SUBCUTANEOUS
     Route: 058
  2. DIAZOXIDE (DIAZOXIDE) [Concomitant]
  3. NIFEDIPINE (NIFEDIPINE) [Concomitant]

REACTIONS (3)
  - Hepatitis [None]
  - Bile duct stone [None]
  - Bile duct stone [None]
